FAERS Safety Report 15815358 (Version 2)
Quarter: 2021Q1

REPORT INFORMATION
  Report Type: Spontaneous
  Country: FR (occurrence: FR)
  Receive Date: 20190112
  Receipt Date: 20210215
  Transmission Date: 20210419
  Serious: Yes (Other)
  Sender: FDA-Public Use
  Company Number: FR-AMGEN-FRASP2019004594

PATIENT
  Age: 69 Year
  Sex: Female

DRUGS (2)
  1. ROMIPLOSTIM [Suspect]
     Active Substance: ROMIPLOSTIM
     Indication: IMMUNE THROMBOCYTOPENIA
     Dosage: 10 MICROGRAM/KILOGRAM, QWK
     Route: 058
  2. VINBLASTINE [Concomitant]
     Active Substance: VINBLASTINE
     Dosage: 5 MILLIGRAM/SQ. METER

REACTIONS (2)
  - Thrombocytosis [Unknown]
  - Off label use [Unknown]
